FAERS Safety Report 8735824 (Version 3)
Quarter: 2013Q2

REPORT INFORMATION
  Report Type: Spontaneous
  Country: US (occurrence: US)
  Receive Date: 20120822
  Receipt Date: 20130613
  Transmission Date: 20140414
  Serious: No
  Sender: FDA-Public Use
  Company Number: US-ELI_LILLY_AND_COMPANY-US201208003743

PATIENT
  Sex: Female

DRUGS (15)
  1. FORTEO [Suspect]
     Indication: OSTEOPOROSIS
     Dosage: 20 UG, QD
     Dates: start: 20120127
  2. FORTEO [Suspect]
     Dosage: 20 UG, QD
     Dates: start: 20120127
  3. LIDODERM [Concomitant]
     Dosage: UNK
  4. ADVAIR [Concomitant]
     Dosage: UNK, BID
  5. NITROGLYCERIN [Concomitant]
     Dosage: 6.5 MG, BID
  6. FLONASE [Concomitant]
     Dosage: UNK, QD
  7. LOSARTAN POTASSIUM [Concomitant]
     Dosage: 25 MG, QD
  8. SPIRIVA [Concomitant]
     Dosage: 18 UG, BID
  9. VITAMIN D [Concomitant]
     Dosage: UNK, BID
  10. NORCO [Concomitant]
     Indication: PAIN
     Dosage: UNK, PRN
  11. ALBUTEROL [Concomitant]
     Dosage: UNK, QID
  12. ZOLOFT [Concomitant]
     Dosage: 75 MG, QD
  13. XANAX [Concomitant]
     Dosage: UNK, EACH EVENING
  14. MUCINEX [Concomitant]
     Dosage: 600 MG, BID
  15. CALCIUM [Concomitant]
     Dosage: 500 MG, BID

REACTIONS (9)
  - Pain [Unknown]
  - Osteoporosis [Unknown]
  - Fractured coccyx [Unknown]
  - Drug dose omission [Unknown]
  - Emphysema [Unknown]
  - Chronic obstructive pulmonary disease [Unknown]
  - Dyspnoea [Unknown]
  - Drug ineffective [Unknown]
  - Dysphonia [Unknown]
